FAERS Safety Report 10078589 (Version 1)
Quarter: 2014Q2

REPORT INFORMATION
  Report Type: Spontaneous
  Country: US (occurrence: None)
  Receive Date: 20140414
  Receipt Date: 20140414
  Transmission Date: 20141212
  Serious: Yes (Hospitalization)
  Sender: FDA-Public Use
  Company Number: None

PATIENT
  Age: 67 Year
  Sex: Female

DRUGS (2)
  1. FORTEO [Suspect]
     Indication: PATHOLOGICAL FRACTURE
     Route: 050
  2. FORTEO [Suspect]
     Indication: KYPHOSIS
     Route: 050

REACTIONS (2)
  - Therapy cessation [None]
  - Investigation [None]
